FAERS Safety Report 5920137-5 (Version None)
Quarter: 2008Q4

REPORT INFORMATION
  Report Type: 
  Country: None (occurrence: None)
  Receive Date: 20081015
  Receipt Date: 20081015
  Transmission Date: 20090506
  Serious: Yes (Hospitalization)
  Sender: FDA-Public Use
  Company Number: None

PATIENT
  Sex: Female
  Weight: 67 kg

DRUGS (4)
  1. CISPLATIN [Suspect]
     Dosage: 84 MG
  2. DOXORUBICIN HCL [Suspect]
     Dosage: 75 MG
  3. G-CSF (FILGRASTIM, AMGEN) [Suspect]
     Dosage: 1500 MCG
  4. TAXOL [Suspect]
     Dosage: 268 MG

REACTIONS (7)
  - BLOOD PRESSURE DECREASED [None]
  - CARDIOVASCULAR DISORDER [None]
  - DIARRHOEA [None]
  - FATIGUE [None]
  - FEBRILE NEUTROPENIA [None]
  - RESPIRATORY DISORDER [None]
  - THROMBOCYTOPENIA [None]
